FAERS Safety Report 13575944 (Version 1)
Quarter: 2017Q2

REPORT INFORMATION
  Report Type: Spontaneous
  Country: US (occurrence: US)
  Receive Date: 20170524
  Receipt Date: 20170524
  Transmission Date: 20170830
  Serious: No
  Sender: FDA-Public Use
  Company Number: US-PFIZER INC-2016532774

PATIENT
  Age: 17 Year
  Sex: Male

DRUGS (3)
  1. PULMICORT TURBUHALER [Concomitant]
     Active Substance: BUDESONIDE
     Indication: ASTHMA
     Dosage: UNK
     Dates: start: 2012
  2. GENOTROPIN [Suspect]
     Active Substance: SOMATROPIN
     Indication: GROWTH HORMONE DEFICIENCY
     Dosage: 4 MG, 1X/DAY, SIX DAYS A WEEK
     Dates: start: 201209
  3. SINGULAIR [Concomitant]
     Active Substance: MONTELUKAST SODIUM
     Indication: ASTHMA
     Dosage: UNK
     Dates: start: 2012

REACTIONS (3)
  - Drug dose omission [Unknown]
  - Back pain [Unknown]
  - Device battery issue [Unknown]

NARRATIVE: CASE EVENT DATE: 20161113
